FAERS Safety Report 12709899 (Version 1)
Quarter: 2016Q3

REPORT INFORMATION
  Report Type: Spontaneous
  Country: JP (occurrence: JP)
  Receive Date: 20160902
  Receipt Date: 20160902
  Transmission Date: 20161109
  Serious: Yes (Hospitalization, Other)
  Sender: FDA-Public Use
  Company Number: JP-GLAXOSMITHKLINE-JP2015JPN103946

PATIENT
  Age: 43 Year
  Sex: Male
  Weight: 72 kg

DRUGS (14)
  1. LAMICTAL [Suspect]
     Active Substance: LAMOTRIGINE
     Dosage: 100 MG, 1D
     Route: 048
     Dates: start: 201405, end: 201405
  2. CARBAMAZEPINE. [Concomitant]
     Active Substance: CARBAMAZEPINE
     Dosage: 400 MG, 1D
  3. LAMICTAL [Suspect]
     Active Substance: LAMOTRIGINE
     Dosage: 150 MG, 1D
     Route: 048
     Dates: start: 201405, end: 201406
  4. GABAPENTIN. [Concomitant]
     Active Substance: GABAPENTIN
     Dosage: 1200 MG, 1D
  5. GABAPENTIN. [Concomitant]
     Active Substance: GABAPENTIN
     Dosage: 1800 MG, 1D
     Dates: end: 201412
  6. LIDOCAINE. [Concomitant]
     Active Substance: LIDOCAINE
     Dosage: 2 UNK, UNK
     Dates: start: 201412, end: 201412
  7. TOPIRAMATE. [Suspect]
     Active Substance: TOPIRAMATE
     Dosage: 100 MG, 1D
     Route: 048
     Dates: start: 201406, end: 201406
  8. LAMICTAL [Suspect]
     Active Substance: LAMOTRIGINE
     Dosage: 200 MG, 1D
     Route: 048
     Dates: start: 201406, end: 201406
  9. INDOMETACIN [Concomitant]
     Active Substance: INDOMETHACIN
     Dosage: 75 MG, 1D
  10. SUMATRIPTAN. [Concomitant]
     Active Substance: SUMATRIPTAN
     Dosage: 3 MG, 1D
     Dates: start: 201405
  11. LAMICTAL [Suspect]
     Active Substance: LAMOTRIGINE
     Dosage: 50 MG, 1D
     Route: 048
     Dates: start: 201405, end: 201405
  12. LIDOCAINE. [Concomitant]
     Active Substance: LIDOCAINE
     Dosage: 2 UNK, UNK
     Dates: start: 201405, end: 201405
  13. TOPIRAMATE. [Suspect]
     Active Substance: TOPIRAMATE
     Dosage: 50 MG, 1D
     Route: 048
     Dates: start: 201406, end: 201406
  14. TOPIRAMATE. [Suspect]
     Active Substance: TOPIRAMATE
     Dosage: 50 MG, 1D
     Route: 048
     Dates: start: 201406, end: 201412

REACTIONS (7)
  - Rash pruritic [Recovering/Resolving]
  - Pyrexia [Recovering/Resolving]
  - SUNCT syndrome [Recovered/Resolved]
  - Dermatitis bullous [Recovered/Resolved]
  - Hepatic function abnormal [Recovering/Resolving]
  - Drug eruption [Recovered/Resolved]
  - Stevens-Johnson syndrome [Recovering/Resolving]

NARRATIVE: CASE EVENT DATE: 201406
